FAERS Safety Report 23771659 (Version 4)
Quarter: 2024Q2

REPORT INFORMATION
  Report Type: Report from Study
  Country: US (occurrence: US)
  Receive Date: 20240423
  Receipt Date: 20240611
  Transmission Date: 20240716
  Serious: No
  Sender: FDA-Public Use
  Company Number: US-AstraZeneca-CH-00606957A

PATIENT
  Sex: Male

DRUGS (1)
  1. SOLIRIS [Suspect]
     Active Substance: ECULIZUMAB
     Indication: Product used for unknown indication
     Dosage: UNK
     Route: 065

REACTIONS (5)
  - Synovial cyst [Unknown]
  - Drug ineffective [Unknown]
  - Pain in extremity [Unknown]
  - Venous thrombosis [Unknown]
  - Vein disorder [Unknown]

NARRATIVE: CASE EVENT DATE: 20150101
